FAERS Safety Report 8510187-7 (Version None)
Quarter: 2012Q3

REPORT INFORMATION
  Report Type: 
  Country: None (occurrence: None)
  Receive Date: 20120713
  Receipt Date: 20120705
  Transmission Date: 20120928
  Serious: Yes (Hospitalization, Other)
  Sender: FDA-Public Use
  Company Number: US-ASTRAZENECA-2011SE66726

PATIENT
  Age: 61 Year
  Sex: Female

DRUGS (3)
  1. ZOMIG [Suspect]
     Dosage: UNKNOWN DOSE AS REQUIRED
     Route: 048
  2. CRESTOR [Suspect]
     Route: 048
  3. ZOMIG [Suspect]
     Route: 048

REACTIONS (4)
  - BLOOD CHOLESTEROL INCREASED [None]
  - MIGRAINE [None]
  - ARTHRALGIA [None]
  - ROAD TRAFFIC ACCIDENT [None]
